FAERS Safety Report 6865469-1 (Version None)
Quarter: 2010Q3

REPORT INFORMATION
  Report Type: 
  Country: None (occurrence: None)
  Receive Date: 20100721
  Receipt Date: 20080514
  Transmission Date: 20110219
  Serious: No
  Sender: FDA-Public Use
  Company Number: US-PFIZER INC-2008034796

PATIENT
  Sex: Female
  Weight: 100 kg

DRUGS (13)
  1. CHANTIX [Suspect]
     Indication: SMOKING CESSATION THERAPY
     Dates: start: 20080330
  2. HYDROCODONE [Concomitant]
  3. REQUIP [Concomitant]
  4. TRICOR [Concomitant]
  5. SYMBYAX [Concomitant]
  6. LORATADINE [Concomitant]
  7. TRAMADOL [Concomitant]
  8. HYDROCHLOROTHIAZIDE [Concomitant]
  9. BENAZEPRIL HYDROCHLORIDE [Concomitant]
  10. TRAZODONE HYDROCHLORIDE [Concomitant]
  11. FLEXERIL [Concomitant]
  12. LYRICA [Concomitant]
  13. MAXALT [Concomitant]

REACTIONS (1)
  - MIGRAINE [None]
